FAERS Safety Report 7008680-1 (Version None)
Quarter: 2010Q3

REPORT INFORMATION
  Report Type: 
  Country: None (occurrence: None)
  Receive Date: 20100922
  Receipt Date: 20100913
  Transmission Date: 20110219
  Serious: Yes (Death, Hospitalization)
  Sender: FDA-Public Use
  Company Number: JP-AMGEN-US395964

PATIENT
  Sex: Female
  Weight: 46 kg

DRUGS (10)
  1. ENBREL [Suspect]
     Indication: RHEUMATOID ARTHRITIS
     Route: 058
     Dates: start: 20090209, end: 20090319
  2. REMICADE [Suspect]
     Indication: RHEUMATOID ARTHRITIS
     Route: 051
     Dates: start: 20050101, end: 20081113
  3. RHEUMATREX [Suspect]
     Indication: RHEUMATOID ARTHRITIS
     Route: 048
     Dates: start: 20040101, end: 20090109
  4. CALCIUM LACTATE [Concomitant]
     Indication: OSTEOPOROSIS
     Route: 048
  5. DEPAS [Concomitant]
     Indication: INSOMNIA
     Route: 048
  6. FAMOTIDINE [Concomitant]
     Indication: GASTRITIS
     Route: 048
  7. ULGUT [Concomitant]
     Indication: GASTRITIS
     Route: 048
  8. SERMION [Concomitant]
     Indication: CEREBRAL INFARCTION
     Route: 048
  9. ASPIRIN [Concomitant]
     Indication: CEREBRAL INFARCTION
     Route: 048
  10. ALFAROL [Concomitant]
     Indication: OSTEOPOROSIS
     Route: 048

REACTIONS (3)
  - EPSTEIN-BARR VIRUS TEST POSITIVE [None]
  - HISTIOCYTOSIS HAEMATOPHAGIC [None]
  - HODGKIN'S DISEASE [None]
